FAERS Safety Report 8406347-6 (Version None)
Quarter: 2012Q2

REPORT INFORMATION
  Report Type: 
  Country: None (occurrence: None)
  Receive Date: 20120529
  Receipt Date: 20090128
  Transmission Date: 20120825
  Serious: Yes (Other)
  Sender: FDA-Public Use
  Company Number: JP-2012-12152

PATIENT
  Age: 77 Year
  Sex: Female

DRUGS (4)
  1. PLETAL [Suspect]
     Dosage: 50 MG MILLIGRAM(S), 3 TIMES PER DAY
  2. CANDESARTAN CILEXETIL [Concomitant]
  3. EPADEL (ETHYL ICOSAPENTATE) [Concomitant]
  4. INTESTINAL REGULATORS (INTESTINAL REGULATORS) [Concomitant]

REACTIONS (3)
  - CARDIAC MURMUR [None]
  - CARDIAC VALVE DISEASE [None]
  - HEART RATE INCREASED [None]
